FAERS Safety Report 16157495 (Version 1)
Quarter: 2019Q2

REPORT INFORMATION
  Report Type: Spontaneous
  Country: US (occurrence: US)
  Receive Date: 20190404
  Receipt Date: 20190404
  Transmission Date: 20190711
  Serious: No
  Sender: FDA-Public Use
  Company Number: US-PFIZER INC-2019139794

PATIENT
  Age: 89 Year
  Sex: Female
  Weight: 66.68 kg

DRUGS (2)
  1. PREMARIN [Suspect]
     Active Substance: ESTROGENS, CONJUGATED
     Indication: URINARY TRACT INFECTION
  2. PREMARIN [Suspect]
     Active Substance: ESTROGENS, CONJUGATED
     Indication: RENAL DISORDER
     Dosage: 1 G, 2X/WEEK (TWO DOSES IN A WEEK)
     Route: 067

REACTIONS (2)
  - Drug effective for unapproved indication [Unknown]
  - Product use issue [Unknown]
